FAERS Safety Report 7400152-5 (Version None)
Quarter: 2011Q2

REPORT INFORMATION
  Report Type: 
  Country: None (occurrence: None)
  Receive Date: 20110407
  Receipt Date: 20110329
  Transmission Date: 20111010
  Serious: Yes (Disabling, Other)
  Sender: FDA-Public Use
  Company Number: BE-ASTRAZENECA-2011SE18532

PATIENT
  Age: 24513 Day
  Sex: Female

DRUGS (10)
  1. TEMESTA [Concomitant]
     Route: 048
  2. CRESTOR [Concomitant]
     Route: 048
  3. SERETIDE SIKUS [Concomitant]
  4. CELECTOL [Concomitant]
     Route: 048
  5. SPIRIVA [Concomitant]
  6. PROPULSID [Concomitant]
     Route: 048
  7. STILNOCT AKTUAPHARMA [Concomitant]
     Route: 048
  8. IRESSA [Suspect]
     Indication: NON-SMALL CELL LUNG CANCER
     Route: 048
     Dates: start: 20101001
  9. IRESSA [Suspect]
     Route: 048
  10. PHARMACEUTICAL LIQUID PREPARATION [Concomitant]

REACTIONS (4)
  - HAEMORRHAGE SUBCUTANEOUS [None]
  - PALMAR ERYTHEMA [None]
  - DIARRHOEA [None]
  - SKIN DISCOLOURATION [None]
